FAERS Safety Report 13781463 (Version 1)
Quarter: 2017Q3

REPORT INFORMATION
  Report Type: Spontaneous
  Country: US (occurrence: US)
  Receive Date: 20170724
  Receipt Date: 20170724
  Transmission Date: 20171127
  Serious: Yes (Hospitalization)
  Sender: FDA-Public Use
  Company Number: None

PATIENT
  Age: 49 Year
  Sex: Male

DRUGS (3)
  1. GLEOSTINE [Suspect]
     Active Substance: LOMUSTINE
     Indication: BRAIN NEOPLASM MALIGNANT
     Dosage: 40MG 1 CAP Q8HOURS DAY 1 REPEAT 28 DAYS PO
     Route: 048
     Dates: start: 20161015, end: 20170526
  2. DILANTIN [Concomitant]
     Active Substance: PHENYTOIN
  3. LOVENOX [Concomitant]
     Active Substance: ENOXAPARIN SODIUM

REACTIONS (2)
  - Hospitalisation [None]
  - Hospice care [None]
